FAERS Safety Report 6603542-3 (Version None)
Quarter: 2010Q1

REPORT INFORMATION
  Report Type: 
  Country: None (occurrence: None)
  Receive Date: 20100226
  Receipt Date: 20090917
  Transmission Date: 20100710
  Serious: No
  Sender: FDA-Public Use
  Company Number: A0808321A

PATIENT
  Age: 77 Year
  Sex: Male

DRUGS (17)
  1. VALTREX [Suspect]
     Route: 048
     Dates: start: 20090819
  2. GABAPENTIN [Suspect]
     Route: 065
  3. ROZEREM [Suspect]
     Route: 065
  4. COUMADIN [Concomitant]
  5. SPIRONOLACTONE [Concomitant]
  6. LASIX [Concomitant]
  7. PREDNISONE TAB [Concomitant]
  8. OMEPRAZOLE [Concomitant]
  9. DIGOXIN [Concomitant]
  10. METOPROLOL TARTRATE [Concomitant]
  11. DIOVAN [Concomitant]
  12. GUAIFENESIN [Concomitant]
  13. LIPITOR [Concomitant]
  14. ASPIRIN [Concomitant]
  15. ALBUTEROL [Concomitant]
  16. SPIRIVA [Concomitant]
  17. ADVAIR DISKUS 100/50 [Concomitant]

REACTIONS (1)
  - DYSURIA [None]
